FAERS Safety Report 20517330 (Version 2)
Quarter: 2022Q2

REPORT INFORMATION
  Report Type: Report from Study
  Country: CA (occurrence: CA)
  Receive Date: 20220225
  Receipt Date: 20220613
  Transmission Date: 20220721
  Serious: Yes (Other)
  Sender: FDA-Public Use
  Company Number: None

PATIENT
  Sex: Female
  Weight: 50 kg

DRUGS (17)
  1. MYCOPHENOLATE MOFETIL [Suspect]
     Active Substance: MYCOPHENOLATE MOFETIL
     Indication: Systemic lupus erythematosus
     Route: 065
  2. RITUXIMAB [Suspect]
     Active Substance: RITUXIMAB
     Indication: Systemic lupus erythematosus
     Route: 042
  3. AMITRIPTYLINE [Concomitant]
     Active Substance: AMITRIPTYLINE
  4. ASPIRIN [Concomitant]
     Active Substance: ASPIRIN
  5. AZATHIOPRINE [Concomitant]
     Active Substance: AZATHIOPRINE
  6. BIOTIN [Concomitant]
     Active Substance: BIOTIN
  7. ESCITALOPRAM [Concomitant]
     Active Substance: ESCITALOPRAM OXALATE
  8. HYDROXYCHLOROQUINE SULFATE [Concomitant]
     Active Substance: HYDROXYCHLOROQUINE SULFATE
  9. IRON [Concomitant]
     Active Substance: IRON
  10. LYSINE [Concomitant]
     Active Substance: LYSINE
  11. NAPROXEN [Concomitant]
     Active Substance: NAPROXEN
  12. DOCONEXENT\ICOSAPENT [Concomitant]
     Active Substance: DOCONEXENT\ICOSAPENT
  13. OMEPRAZOLE [Concomitant]
     Active Substance: OMEPRAZOLE
  14. PREDNISONE [Concomitant]
     Active Substance: PREDNISONE
  15. VITAMIN D3 [Concomitant]
     Active Substance: CHOLECALCIFEROL
  16. VITAMINS NOS [Concomitant]
     Active Substance: VITAMINS
  17. ZOPICLONE [Concomitant]
     Active Substance: ZOPICLONE

REACTIONS (6)
  - Alopecia [Unknown]
  - Cerebral disorder [Unknown]
  - Muscle atrophy [Unknown]
  - Pigmentation disorder [Unknown]
  - Rash [Unknown]
  - Off label use [Unknown]
